FAERS Safety Report 8166370-6 (Version None)
Quarter: 2012Q1

REPORT INFORMATION
  Report Type: 
  Country: None (occurrence: None)
  Receive Date: 20120227
  Receipt Date: 20110713
  Transmission Date: 20120608
  Serious: No
  Sender: FDA-Public Use
  Company Number: US-MYLANLABS-2011S1013020

PATIENT
  Age: 17 Year
  Sex: Female

DRUGS (6)
  1. CLARAVIS [Suspect]
     Indication: ACNE
     Dates: start: 20110120
  2. LOESTRIN 1.5/30 [Suspect]
     Dates: start: 20101101
  3. CLARAVIS [Suspect]
  4. AMNESTEEM [Suspect]
     Indication: ACNE
     Dates: end: 20110527
  5. ELAVIL [Concomitant]
     Dates: start: 20101201
  6. CLARAVIS [Suspect]

REACTIONS (2)
  - RASH [None]
  - ERYTHEMA NODOSUM [None]
